FAERS Safety Report 11255650 (Version 1)
Quarter: 2015Q3

REPORT INFORMATION
  Report Type: Spontaneous
  Country: US (occurrence: US)
  Receive Date: 20150709
  Receipt Date: 20150709
  Transmission Date: 20151125
  Serious: No
  Sender: FDA-Public Use
  Company Number: US-CELGENEUS-USA-2015055328

PATIENT
  Sex: Female

DRUGS (2)
  1. ABRAXANE [Suspect]
     Active Substance: PACLITAXEL
     Indication: BREAST CANCER METASTATIC
     Route: 041
  2. AFINITOR [Concomitant]
     Active Substance: EVEROLIMUS
     Indication: BREAST CANCER METASTATIC
     Route: 065
     Dates: start: 20100101

REACTIONS (1)
  - Lung disorder [Unknown]
